FAERS Safety Report 7089656-5 (Version None)
Quarter: 2010Q4

REPORT INFORMATION
  Report Type: 
  Country: None (occurrence: None)
  Receive Date: 20101108
  Receipt Date: 20101101
  Transmission Date: 20110411
  Serious: Yes (Other)
  Sender: FDA-Public Use
  Company Number: GB-ABBOTT-10P-167-0682478-00

PATIENT

DRUGS (1)
  1. ERYTHROMYCIN [Suspect]
     Indication: OCCUPATIONAL EXPOSURE TO DRUG

REACTIONS (5)
  - ASTHMA [None]
  - HYPERSENSITIVITY [None]
  - OCCUPATIONAL EXPOSURE TO DRUG [None]
  - RHINITIS [None]
  - WHEEZING [None]
